FAERS Safety Report 8078615-1 (Version None)
Quarter: 2012Q1

REPORT INFORMATION
  Report Type: 
  Country: None (occurrence: None)
  Receive Date: 20120124
  Receipt Date: 20120113
  Transmission Date: 20120608
  Serious: Yes (Other)
  Sender: FDA-Public Use
  Company Number: 1000027319

PATIENT
  Sex: Female

DRUGS (6)
  1. ESCITALOPRAM OXALATE [Suspect]
     Indication: DEPRESSION
     Dosage: 20 MG (20 MG, 1 IN 1 D), ORAL
     Route: 048
     Dates: start: 20111026
  2. PINAVERIUM (PINAVERIUM) (PINAVERIUM) [Concomitant]
  3. DAFALGAN (PARACETAMOL) (PARACETAMOL) [Concomitant]
  4. DERINOX (AMOXICILLIN TRIHYDRATE) (DROPS) (AMOXICILLIN TRIHYDRATE) [Concomitant]
  5. ZOLPIDEM (ZOLPIDEM) (ZOLPIDEM) [Concomitant]
  6. SPIFEN (IBUPROFEN) (IBUPROFEN) [Concomitant]

REACTIONS (2)
  - APALLIC SYNDROME [None]
  - ANXIETY [None]
